FAERS Safety Report 5623827-7 (Version None)
Quarter: 2008Q1

REPORT INFORMATION
  Report Type: 
  Country: None (occurrence: None)
  Receive Date: 20080207
  Receipt Date: 20080122
  Transmission Date: 20080703
  Serious: Yes (Death, Hospitalization)
  Sender: FDA-Public Use
  Company Number: 2007-GWUS-0635

PATIENT
  Age: 77 Year
  Sex: Male
  Weight: 81.6475 kg

DRUGS (5)
  1. ALDARA [Suspect]
     Indication: ACTINIC KERATOSIS
     Dosage: 5XW; TOPICAL
     Route: 061
     Dates: start: 20070701, end: 20070911
  2. ALDARA [Suspect]
     Indication: BASAL CELL CARCINOMA
     Dosage: 5XW; TOPICAL
     Route: 061
     Dates: start: 20070701, end: 20070911
  3. PREDNISONE (DELATASONE) TAB [Concomitant]
  4. CENTRUM SILVER TAB [Concomitant]
  5. FISH OIL [Concomitant]

REACTIONS (11)
  - APPLICATION SITE DISCHARGE [None]
  - APPLICATION SITE ERYTHEMA [None]
  - APPLICATION SITE IRRITATION [None]
  - APPLICATION SITE REACTION [None]
  - APPLICATION SITE SCAB [None]
  - COAGULOPATHY [None]
  - SKIN DISCOLOURATION [None]
  - SKIN NECROSIS [None]
  - THROMBOCYTOPENIA [None]
  - THROMBOSIS [None]
  - VASCULITIS [None]
